FAERS Safety Report 24286389 (Version 4)
Quarter: 2025Q1

REPORT INFORMATION
  Report Type: Report from Study
  Country: US (occurrence: US)
  Receive Date: 20240905
  Receipt Date: 20250312
  Transmission Date: 20250408
  Serious: Yes (Other)
  Sender: CALLIDITAS THERAPEUTICS AB
  Company Number: US-Calliditas-2024CAL01689

PATIENT
  Age: 43 Year
  Sex: Male
  Weight: 79.8 kg

DRUGS (27)
  1. TARPEYO [Suspect]
     Active Substance: BUDESONIDE
     Indication: IgA nephropathy
     Route: 048
     Dates: start: 20240718
  2. ATORVASTATIN [Concomitant]
     Active Substance: ATORVASTATIN
  3. ASPIRIN [Concomitant]
     Active Substance: ASPIRIN
  4. VITAMIN B12 [Concomitant]
     Active Substance: CYANOCOBALAMIN
  5. VERAPAMIL [Concomitant]
     Active Substance: VERAPAMIL HYDROCHLORIDE
  6. ULORIC [Concomitant]
     Active Substance: FEBUXOSTAT
  7. OLMESARTAN [Concomitant]
     Active Substance: OLMESARTAN
  8. VITAMIN D3 [Concomitant]
     Active Substance: CHOLECALCIFEROL
  9. TORSEMIDE [Concomitant]
     Active Substance: TORSEMIDE
  10. PREDNISONE [Concomitant]
     Active Substance: PREDNISONE
  11. VITAMIN B1 [Concomitant]
     Active Substance: THIAMINE HYDROCHLORIDE
  12. ADALAT CC [Concomitant]
     Active Substance: NIFEDIPINE
  13. LIPITOR [Concomitant]
     Active Substance: ATORVASTATIN CALCIUM
  14. ZYRTEC [Concomitant]
     Active Substance: CETIRIZINE HYDROCHLORIDE
  15. PEPCID [Concomitant]
     Active Substance: FAMOTIDINE
  16. GLIPIZIDE [Concomitant]
     Active Substance: GLIPIZIDE
  17. XYZAL [Concomitant]
     Active Substance: LEVOCETIRIZINE DIHYDROCHLORIDE
  18. BENICARDINE [Concomitant]
  19. FISH OIL [Concomitant]
     Active Substance: FISH OIL
  20. ADALAT [Concomitant]
     Active Substance: NIFEDIPINE
  21. VITAMIN B1 [Concomitant]
     Active Substance: THIAMINE HYDROCHLORIDE
  22. PREDNISONE [Concomitant]
     Active Substance: PREDNISONE
  23. OMEGA 3 [COLECALCIFEROL;DOCOSAHEXAENOIC ACID;EICOSAPENTAENOIC ACID;... [Concomitant]
  24. ZYRTEC [Concomitant]
     Active Substance: CETIRIZINE HYDROCHLORIDE
  25. PEPCID [Concomitant]
     Active Substance: FAMOTIDINE
  26. GLIPIZIDE [Concomitant]
     Active Substance: GLIPIZIDE
  27. XYZAL [Concomitant]
     Active Substance: LEVOCETIRIZINE DIHYDROCHLORIDE

REACTIONS (6)
  - Type 2 diabetes mellitus [Not Recovered/Not Resolved]
  - Insomnia [Unknown]
  - Acne [Not Recovered/Not Resolved]
  - Impaired healing [Not Recovered/Not Resolved]
  - Fluid retention [Not Recovered/Not Resolved]
  - Swelling face [Not Recovered/Not Resolved]

NARRATIVE: CASE EVENT DATE: 20240812
